FAERS Safety Report 24283189 (Version 1)
Quarter: 2024Q3

REPORT INFORMATION
  Report Type: Report from Study
  Country: BY (occurrence: BY)
  Receive Date: 20240904
  Receipt Date: 20240904
  Transmission Date: 20241016
  Serious: Yes (Death)
  Sender: MYLAN
  Company Number: BY-MYLANLABS-2024M1081222

PATIENT
  Age: 49 Year
  Sex: Male
  Weight: 62 kg

DRUGS (4)
  1. PRETOMANID [Suspect]
     Active Substance: PRETOMANID
     Indication: Product used for unknown indication
     Dosage: 200 MILLIGRAM, QD (DAILY ONCE)
     Route: 048
     Dates: start: 20220809, end: 20230123
  2. BEDAQUILINE [Suspect]
     Active Substance: BEDAQUILINE
     Indication: Product used for unknown indication
     Dosage: 400 MG OD PO FOR 2 WEEKS, THEN 200 MG TIW PO
     Route: 048
     Dates: start: 20220809, end: 20230123
  3. LINEZOLID [Suspect]
     Active Substance: LINEZOLID
     Indication: Product used for unknown indication
     Dosage: 600 MG -112 DOSES, THEN 300 MG
     Route: 065
     Dates: start: 20220809, end: 20230123
  4. MOXIFLOXACIN [Suspect]
     Active Substance: MOXIFLOXACIN
     Indication: Product used for unknown indication
     Dosage: 400 MILLIGRAM, QD (DAILY ONCE)
     Route: 048
     Dates: start: 20220809, end: 20230123

REACTIONS (1)
  - Alcohol poisoning [Fatal]

NARRATIVE: CASE EVENT DATE: 20230204
